FAERS Safety Report 9562070 (Version 1)
Quarter: 2013Q3

REPORT INFORMATION
  Report Type: Spontaneous
  Country: US (occurrence: US)
  Receive Date: 20130927
  Receipt Date: 20130927
  Transmission Date: 20140515
  Serious: Yes (Hospitalization)
  Sender: FDA-Public Use
  Company Number: US-ROCHE-1279190

PATIENT
  Sex: Male

DRUGS (1)
  1. ZELBORAF [Suspect]
     Indication: MALIGNANT MELANOMA
     Route: 065

REACTIONS (9)
  - Dehydration [Unknown]
  - Fatigue [Unknown]
  - Confusional state [Unknown]
  - Hypotension [Unknown]
  - Heart rate increased [Unknown]
  - Urinary tract infection [Unknown]
  - Renal failure [Unknown]
  - Cardiac failure congestive [Unknown]
  - Pneumonia [Unknown]
